FAERS Safety Report 5365058-4 (Version None)
Quarter: 2007Q2

REPORT INFORMATION
  Report Type: 
  Country: None (occurrence: None)
  Receive Date: 20070621
  Receipt Date: 20070131
  Transmission Date: 20071010
  Serious: Yes (Other)
  Sender: FDA-Public Use
  Company Number: US-AVENTIS-200714388US

PATIENT
  Sex: Female

DRUGS (1)
  1. TRENTAL [Suspect]
     Dosage: DOSE: UNK

REACTIONS (1)
  - BLOOD TRIGLYCERIDES INCREASED [None]
